FAERS Safety Report 6830923-5 (Version None)
Quarter: 2010Q3

REPORT INFORMATION
  Report Type: 
  Country: None (occurrence: None)
  Receive Date: 20100712
  Receipt Date: 20100630
  Transmission Date: 20110219
  Serious: No
  Sender: FDA-Public Use
  Company Number: US-JNJFOC-20100700393

PATIENT
  Sex: Male
  Weight: 79.38 kg

DRUGS (4)
  1. FENTANYL CITRATE [Suspect]
     Indication: PAIN
     Route: 062
  2. METHADONE HCL [Concomitant]
     Indication: PAIN
     Route: 048
  3. DILAUDID [Concomitant]
     Indication: BREAKTHROUGH PAIN
     Dosage: AS NEEDED
     Route: 048
  4. NORCO [Concomitant]
     Indication: BREAKTHROUGH PAIN
     Dosage: 10/325 MG ,4 TIMES A DAY AS NEEDED
     Route: 048

REACTIONS (2)
  - PRODUCT ADHESION ISSUE [None]
  - WRONG TECHNIQUE IN DRUG USAGE PROCESS [None]
